FAERS Safety Report 16665171 (Version 1)
Quarter: 2019Q3

REPORT INFORMATION
  Report Type: Spontaneous
  Country: US (occurrence: US)
  Receive Date: 20190803
  Receipt Date: 20190803
  Transmission Date: 20191004
  Serious: Yes (Other)
  Sender: FDA-Public Use
  Company Number: US-ACCORD-110128

PATIENT
  Age: 58 Year
  Sex: Female

DRUGS (5)
  1. DOXORUBICIN [Suspect]
     Active Substance: DOXORUBICIN
     Indication: UTERINE CANCER
     Dosage: NUMBER OF CYCLES: 06
     Dates: start: 20150720, end: 20151223
  2. DOCETAXEL ACCORD [Suspect]
     Active Substance: DOCETAXEL
     Indication: UTERINE CANCER
     Dosage: NUMBER OF CYCLES: 06
     Dates: start: 20150720, end: 20151223
  3. HYDROCHLOROTHIAZIDE/LISINOPRIL [Concomitant]
     Dates: start: 2017
  4. GEMZAR [Suspect]
     Active Substance: GEMCITABINE HYDROCHLORIDE
     Indication: UTERINE CANCER
     Dosage: NUMBER OF CYCLES: 06
     Dates: start: 20150720, end: 20151223
  5. LISINOPRIL. [Concomitant]
     Active Substance: LISINOPRIL
     Dates: start: 2011, end: 2017

REACTIONS (2)
  - Alopecia [Not Recovered/Not Resolved]
  - Off label use [Unknown]

NARRATIVE: CASE EVENT DATE: 201508
